FAERS Safety Report 20053285 (Version 3)
Quarter: 2023Q1

REPORT INFORMATION
  Report Type: Spontaneous
  Country: US (occurrence: US)
  Receive Date: 20211110
  Receipt Date: 20230123
  Transmission Date: 20230418
  Serious: No
  Sender: FDA-Public Use
  Company Number: US-PFIZER INC-202101360488

PATIENT
  Age: 87 Year
  Sex: Female
  Weight: 68.027 kg

DRUGS (1)
  1. VYNDAMAX [Suspect]
     Active Substance: TAFAMIDIS
     Dosage: 61 MG

REACTIONS (3)
  - Pruritus [Unknown]
  - Weight increased [Unknown]
  - Fluid retention [Unknown]
